FAERS Safety Report 15954580 (Version 2)
Quarter: 2019Q1

REPORT INFORMATION
  Report Type: Spontaneous
  Country: TR (occurrence: TR)
  Receive Date: 20190213
  Receipt Date: 20190320
  Transmission Date: 20190417
  Serious: Yes (Other)
  Sender: FDA-Public Use
  Company Number: TR-ASTELLAS-2019US005326

PATIENT
  Age: 80 Year
  Sex: Male

DRUGS (3)
  1. XTANDI [Suspect]
     Active Substance: ENZALUTAMIDE
     Indication: HORMONE-REFRACTORY PROSTATE CANCER
     Dosage: 160 MG, ONCE DAILY (40 MG 1X4)
     Route: 048
  2. COUMADIN [Suspect]
     Active Substance: WARFARIN SODIUM
     Indication: PRODUCT USED FOR UNKNOWN INDICATION
     Dosage: ONCE DAILY (5 MG PER DAY IN WORKING DAYS, 2.5 MG PER DAY IN THE WEEKEND DAYS)
     Route: 048
  3. COUMADIN [Suspect]
     Active Substance: WARFARIN SODIUM
     Dosage: ONCE DAILY (2.5 MG PER DAY FOR WORKING DAYS, 5 MG PER DAY FOR WEEKEND DAYS)
     Route: 048

REACTIONS (1)
  - Haemorrhage [Recovered/Resolved]
